FAERS Safety Report 12508974 (Version 1)
Quarter: 2016Q2

REPORT INFORMATION
  Report Type: Spontaneous
  Country: JP (occurrence: JP)
  Receive Date: 20160629
  Receipt Date: 20160629
  Transmission Date: 20160815
  Serious: Yes (Death, Other)
  Sender: FDA-Public Use
  Company Number: JP-REGENERON PHARMACEUTICALS, INC.-2016-18787

PATIENT

DRUGS (4)
  1. EYLEA [Suspect]
     Active Substance: AFLIBERCEPT
     Dosage: 0.05 ML, ONCE
     Route: 031
     Dates: start: 20140911, end: 20140911
  2. EYLEA [Suspect]
     Active Substance: AFLIBERCEPT
     Indication: AGE-RELATED MACULAR DEGENERATION
     Dosage: 0.05 ML, ONCE
     Route: 031
     Dates: start: 20140115, end: 20140115
  3. EYLEA [Suspect]
     Active Substance: AFLIBERCEPT
     Dosage: 0.05 ML, ONCE
     Route: 031
     Dates: start: 20140514, end: 20140514
  4. EYLEA [Suspect]
     Active Substance: AFLIBERCEPT
     Dosage: 0.05 ML, ONCE
     Route: 031
     Dates: start: 20140212, end: 20140212

REACTIONS (2)
  - Acute myocardial infarction [Fatal]
  - Product use issue [Unknown]

NARRATIVE: CASE EVENT DATE: 20141008
